FAERS Safety Report 5919244-2 (Version None)
Quarter: 2008Q4

REPORT INFORMATION
  Report Type: 
  Country: None (occurrence: None)
  Receive Date: 20081010
  Receipt Date: 20080925
  Transmission Date: 20090506
  Serious: Yes (Other)
  Sender: FDA-Public Use
  Company Number: 8037643

PATIENT
  Age: 40 Year
  Sex: Male

DRUGS (2)
  1. PREDNISOLONE [Suspect]
     Indication: SYMPATHETIC OPHTHALMIA
     Dosage: 10 MG 1/D
  2. CYCLOSPORINE [Suspect]
     Indication: SYMPATHETIC OPHTHALMIA
     Dosage: 50 MG 2/D

REACTIONS (4)
  - ABDOMINAL PAIN [None]
  - DIARRHOEA [None]
  - NAUSEA [None]
  - UVEITIS [None]
